FAERS Safety Report 8400387-9 (Version None)
Quarter: 2012Q2

REPORT INFORMATION
  Report Type: 
  Country: None (occurrence: None)
  Receive Date: 20120531
  Receipt Date: 20120521
  Transmission Date: 20120825
  Serious: Yes (Hospitalization, Other)
  Sender: FDA-Public Use
  Company Number: BR-ABBOTT-11P-020-0848910-00

PATIENT
  Sex: Female
  Weight: 54 kg

DRUGS (9)
  1. UNSPECIFIED CORTICOID [Concomitant]
     Indication: PAIN
  2. METHOTREXATE [Concomitant]
     Indication: RHEUMATOID ARTHRITIS
     Route: 048
  3. HUMIRA [Suspect]
     Indication: RHEUMATOID ARTHRITIS
     Route: 058
     Dates: start: 20050401, end: 20110201
  4. AMLODIPINE BESYLATE [Concomitant]
     Indication: BLOOD PRESSURE MANAGEMENT
     Dosage: 1 TABLET DAILY = 25 MG
     Dates: start: 20110201
  5. ATENOLOL [Concomitant]
     Indication: BLOOD PRESSURE MANAGEMENT
     Dosage: 1 TABLET DAILY = 25 MG
     Dates: start: 20110201
  6. VETIA + SIMVASTATIN [Concomitant]
     Indication: BLOOD CHOLESTEROL ABNORMAL
     Dosage: 1 TABLET DAILY = 10MG + 20MG
     Dates: start: 20110201
  7. UNSPECIFIED CORTICOID [Concomitant]
     Indication: RHEUMATOID ARTHRITIS
     Route: 048
     Dates: start: 20050101
  8. ASPIRIN [Concomitant]
     Indication: ANTICOAGULANT THERAPY
     Dosage: 2 TABLETS PER DAY = 200 MG
     Dates: start: 20110201
  9. MELOXICAM [Concomitant]
     Indication: PAIN
     Route: 048
     Dates: start: 20050101

REACTIONS (7)
  - ARTERIAL OCCLUSIVE DISEASE [None]
  - BLOOD PRESSURE INCREASED [None]
  - CHEST PAIN [None]
  - MALAISE [None]
  - BLOOD CHOLESTEROL INCREASED [None]
  - CHOKING [None]
  - CHEST DISCOMFORT [None]
